FAERS Safety Report 9526041 (Version 1)
Quarter: 2013Q1

REPORT INFORMATION
  Report Type: Spontaneous
  Country: US (occurrence: None)
  Receive Date: 20130314
  Receipt Date: 20130314
  Transmission Date: 20140127
  Serious: No
  Sender: FDA-Public Use
  Company Number: 1301USA004458

PATIENT
  Age: 52 Year
  Sex: Male

DRUGS (3)
  1. VICTRELIS [Suspect]
     Indication: HEPATITIS C
     Route: 048
     Dates: start: 201301
  2. PEGINTRON [Suspect]
     Route: 058
     Dates: start: 201212
  3. REBETOL (RIBAVIRIN) CAPSULE [Suspect]
     Route: 048
     Dates: start: 201212

REACTIONS (2)
  - Proctalgia [None]
  - Abnormal faeces [None]
